FAERS Safety Report 7238345-2 (Version None)
Quarter: 2011Q1

REPORT INFORMATION
  Report Type: 
  Country: None (occurrence: None)
  Receive Date: 20110121
  Receipt Date: 20110112
  Transmission Date: 20110831
  Serious: Yes (Hospitalization)
  Sender: FDA-Public Use
  Company Number: CH-ASTRAZENECA-2011SE02015

PATIENT
  Age: 27 Year
  Sex: Female
  Weight: 55 kg

DRUGS (4)
  1. PRIADEL [Interacting]
     Indication: BIPOLAR DISORDER
     Route: 048
     Dates: start: 20101104, end: 20101116
  2. PANTOZOL [Interacting]
     Route: 048
  3. SEROQUEL [Suspect]
     Route: 048
  4. CITALOPRAM HYDROBROMIDE [Interacting]
     Indication: BIPOLAR DISORDER
     Route: 048

REACTIONS (7)
  - SEROTONIN SYNDROME [None]
  - HYPERTONIA [None]
  - HYPERREFLEXIA [None]
  - MUSCLE CONTRACTIONS INVOLUNTARY [None]
  - DRUG INTERACTION [None]
  - HEADACHE [None]
  - NAUSEA [None]
